FAERS Safety Report 17618229 (Version 1)
Quarter: 2020Q2

REPORT INFORMATION
  Report Type: Spontaneous
  Country: US (occurrence: US)
  Receive Date: 20200402
  Receipt Date: 20200402
  Transmission Date: 20200713
  Serious: No
  Sender: FDA-Public Use
  Company Number: US-ROCHE-2472020

PATIENT
  Age: 67 Year
  Sex: Male

DRUGS (2)
  1. ERIVEDGE [Suspect]
     Active Substance: VISMODEGIB
     Indication: NEOPLASM MALIGNANT
  2. ERIVEDGE [Suspect]
     Active Substance: VISMODEGIB
     Indication: SKIN CANCER
     Dosage: ONGOING: YES
     Route: 048
     Dates: start: 20190508

REACTIONS (4)
  - Fatigue [Unknown]
  - Alopecia [Unknown]
  - Muscle spasms [Unknown]
  - Ageusia [Unknown]

NARRATIVE: CASE EVENT DATE: 201912
